FAERS Safety Report 14798106 (Version 2)
Quarter: 2019Q2

REPORT INFORMATION
  Report Type: Report from Study
  Country: US (occurrence: US)
  Receive Date: 20180424
  Receipt Date: 20190412
  Transmission Date: 20190711
  Serious: Yes (Hospitalization, Other)
  Sender: FDA-Public Use
  Company Number: US-ROCHE-2095290

PATIENT
  Age: 35 Year
  Sex: Female
  Weight: 68.1 kg

DRUGS (3)
  1. OCREVUS [Suspect]
     Active Substance: OCRELIZUMAB
     Route: 065
     Dates: start: 20170817
  2. OCREVUS [Suspect]
     Active Substance: OCRELIZUMAB
     Indication: PRIMARY PROGRESSIVE MULTIPLE SCLEROSIS
     Dosage: /AUG/2017
     Route: 065
     Dates: start: 201709
  3. OCREVUS [Suspect]
     Active Substance: OCRELIZUMAB
     Route: 065
     Dates: start: 20170801

REACTIONS (9)
  - Skin abrasion [Recovering/Resolving]
  - Infection [Unknown]
  - Heart rate increased [Recovered/Resolved]
  - Limb injury [Unknown]
  - Speech disorder [Unknown]
  - Skin discolouration [Recovering/Resolving]
  - Wound [Not Recovered/Not Resolved]
  - Malaise [Unknown]
  - Body temperature increased [Unknown]

NARRATIVE: CASE EVENT DATE: 20180412
